FAERS Safety Report 10613186 (Version 1)
Quarter: 2014Q4

REPORT INFORMATION
  Report Type: Spontaneous
  Country: US (occurrence: US)
  Receive Date: 20141128
  Receipt Date: 20141128
  Transmission Date: 20150529
  Serious: No
  Sender: FDA-Public Use
  Company Number: US-009507513-1411USA007123

PATIENT
  Sex: Female
  Weight: 99.32 kg

DRUGS (1)
  1. IMPLANON [Suspect]
     Active Substance: ETONOGESTREL
     Dosage: ROD
     Route: 059
     Dates: start: 20131022

REACTIONS (4)
  - Device kink [Not Recovered/Not Resolved]
  - Overweight [Unknown]
  - Medical device complication [Not Recovered/Not Resolved]
  - No adverse event [Unknown]
